FAERS Safety Report 23063241 (Version 1)
Quarter: 2023Q4

REPORT INFORMATION
  Report Type: Spontaneous
  Country: GB (occurrence: GB)
  Receive Date: 20231013
  Receipt Date: 20231013
  Transmission Date: 20240109
  Serious: Yes (Other)
  Sender: FDA-Public Use
  Company Number: None

PATIENT
  Age: 63 Year
  Sex: Female
  Weight: 56 kg

DRUGS (10)
  1. RISPERIDONE [Suspect]
     Active Substance: RISPERIDONE
     Indication: Ill-defined disorder
     Dosage: UNK
     Route: 065
     Dates: start: 20230920
  2. CALCIUM CARBONATE\SODIUM ALGINATE\SODIUM BICARBONATE [Concomitant]
     Active Substance: CALCIUM CARBONATE\SODIUM ALGINATE\SODIUM BICARBONATE
     Indication: Ill-defined disorder
     Dosage: 2X5ML SPOON 4 TIMES/DAY IF NEEDED FOR REFLUX
     Route: 065
     Dates: start: 20221109
  3. ARIPIPRAZOLE [Concomitant]
     Active Substance: ARIPIPRAZOLE
     Indication: Ill-defined disorder
     Dosage: TAKE ONE IN THE MORNING
     Route: 065
     Dates: start: 20230918
  4. BISOPROLOL [Concomitant]
     Active Substance: BISOPROLOL\BISOPROLOL FUMARATE
     Indication: Ill-defined disorder
     Dosage: TAKE ONE DAILY
     Route: 065
     Dates: start: 20221116
  5. CHOLECALCIFEROL [Concomitant]
     Active Substance: CHOLECALCIFEROL
     Indication: Ill-defined disorder
     Dosage: ONE DAILY
     Route: 065
     Dates: start: 20230531
  6. CALCIUM\CARBOXYMETHYLCELLULOSE\DEVICE\MAGNESIUM\POTASSIUM\SODIUM CL\SO [Concomitant]
     Active Substance: CALCIUM\CARBOXYMETHYLCELLULOSE\DEVICE\MAGNESIUM\POTASSIUM\SODIUM CL\SORBITOL
     Indication: Ill-defined disorder
     Dosage: WHEN REQUIRED MAX 6 TIMES PER DAY
     Route: 065
     Dates: start: 20221116
  7. LANSOPRAZOLE [Concomitant]
     Active Substance: LANSOPRAZOLE
     Indication: Ill-defined disorder
     Dosage: ONE TO BE TAKEN TWICE DAILY FOR 2 WEEKS THEN ON...
     Route: 065
     Dates: start: 20221109
  8. LEVOTHYROXINE [Concomitant]
     Active Substance: LEVOTHYROXINE
     Indication: Ill-defined disorder
     Dosage: TAKE ONE EACH MORNING
     Route: 065
     Dates: start: 20221109
  9. PROCYCLIDINE [Concomitant]
     Active Substance: PROCYCLIDINE
     Indication: Ill-defined disorder
     Dosage: 1 TO BE TAKEN TWICE DAILY
     Route: 065
     Dates: start: 20230531
  10. RISPERIDONE [Concomitant]
     Active Substance: RISPERIDONE
     Indication: Ill-defined disorder
     Dosage: TAKE HALF A TABLET IN THE MORNING AND ONE TABLE...
     Route: 065
     Dates: start: 20230602, end: 20230821

REACTIONS (1)
  - Adverse drug reaction [Recovered/Resolved]

NARRATIVE: CASE EVENT DATE: 20231003
